FAERS Safety Report 23795846 (Version 5)
Quarter: 2024Q2

REPORT INFORMATION
  Report Type: Spontaneous
  Country: FR (occurrence: FR)
  Receive Date: 20240429
  Receipt Date: 20240627
  Transmission Date: 20240715
  Serious: Yes (Hospitalization)
  Sender: FDA-Public Use
  Company Number: FR-BIOGEN-2024BI01262146

PATIENT
  Age: 33 Year
  Sex: Female

DRUGS (10)
  1. TYSABRI [Suspect]
     Active Substance: NATALIZUMAB
     Indication: Multiple sclerosis
     Route: 050
     Dates: start: 200801
  2. LYRICA [Concomitant]
     Active Substance: PREGABALIN
     Indication: Product used for unknown indication
     Dosage: 75 (UNITS UNSPECIFIED)
     Route: 050
  3. BACLOFEN [Concomitant]
     Active Substance: BACLOFEN
     Indication: Product used for unknown indication
     Route: 050
     Dates: start: 201404
  4. SOLU-MEDROL [Concomitant]
     Active Substance: METHYLPREDNISOLONE SODIUM SUCCINATE
     Indication: Multiple sclerosis relapse
     Route: 050
  5. CICLOPIROX\CICLOPIROX OLAMINE [Concomitant]
     Active Substance: CICLOPIROX\CICLOPIROX OLAMINE
     Indication: Vulvovaginal mycotic infection
     Route: 050
     Dates: start: 201211
  6. CEFIXIME [Concomitant]
     Active Substance: CEFIXIME
     Indication: Urinary tract infection
     Route: 050
     Dates: start: 201402
  7. TAMSULOSIN [Concomitant]
     Active Substance: TAMSULOSIN
     Indication: Product used for unknown indication
     Route: 050
     Dates: start: 201503
  8. ESOMEPRAZOLE [Concomitant]
     Active Substance: ESOMEPRAZOLE
     Indication: Cholelithiasis
     Route: 050
     Dates: start: 201504
  9. GAVISCON [Concomitant]
     Active Substance: ALUMINUM HYDROXIDE\MAGNESIUM CARBONATE
     Indication: Cholelithiasis
     Route: 050
     Dates: start: 201504
  10. DOLIPRANE [Concomitant]
     Active Substance: ACETAMINOPHEN
     Indication: Cholelithiasis
     Route: 050
     Dates: start: 201504

REACTIONS (5)
  - Escherichia pyelonephritis [Unknown]
  - Micturition urgency [Recovered/Resolved]
  - Dysuria [Unknown]
  - Discomfort [Recovered/Resolved]
  - Hypoaesthesia [Recovered/Resolved]

NARRATIVE: CASE EVENT DATE: 20080901
